FAERS Safety Report 8840848 (Version 1)
Quarter: 2012Q4

REPORT INFORMATION
  Report Type: 
  Country: ES (occurrence: ES)
  Receive Date: 20121015
  Receipt Date: 20121015
  Transmission Date: 20130627
  Serious: Yes (Death)
  Sender: FDA-Public Use
  Company Number: PHHY2012ES091047

PATIENT

DRUGS (2)
  1. CICLOSPORIN [Suspect]
     Indication: ACUTE GRAFT VERSUS HOST DISEASE
     Dosage: 1 mg/kg, QD
  2. MYCOPHENOLATE MOFETIL [Concomitant]
     Indication: ACUTE GRAFT VERSUS HOST DISEASE
     Dosage: 15 g, Q12H
     Route: 042

REACTIONS (1)
  - Haemorrhage [Fatal]
